FAERS Safety Report 13879913 (Version 2)
Quarter: 2018Q2

REPORT INFORMATION
  Report Type: Spontaneous
  Country: US (occurrence: US)
  Receive Date: 20170818
  Receipt Date: 20180409
  Transmission Date: 20180711
  Serious: No
  Sender: FDA-Public Use
  Company Number: US-TEVA-749528ACC

PATIENT
  Sex: Female

DRUGS (10)
  1. BIOTIN [Concomitant]
     Active Substance: BIOTIN
  2. LAMICTAL [Concomitant]
     Active Substance: LAMOTRIGINE
  3. TURMERIC [Concomitant]
     Active Substance: HERBALS\TURMERIC
  4. VITAMIN D [Concomitant]
     Active Substance: CHOLECALCIFEROL
  5. WELLBUTRIN [Concomitant]
     Active Substance: BUPROPION HYDROCHLORIDE
  6. PRENATAL [Concomitant]
     Active Substance: VITAMINS
  7. VITAMIN B COMPLEX [Concomitant]
     Active Substance: CYANOCOBALAMIN\DEXPANTHENOL\NIACINAMIDE\PYRIDOXINE HYDROCHLORIDE\RIBOFLAVIN 5^-PHOSPHATE SODIUM\THIAMINE HYDROCHLORIDE\VITAMIN B COMPLEX
  8. D3-50 [Concomitant]
  9. ZYRTEC [Concomitant]
     Active Substance: CETIRIZINE HYDROCHLORIDE
  10. COPAXONE [Suspect]
     Active Substance: GLATIRAMER ACETATE
     Indication: MULTIPLE SCLEROSIS
     Dosage: PEN
     Route: 058
     Dates: start: 20160316

REACTIONS (3)
  - Drug dose omission [Unknown]
  - Exposure during pregnancy [Unknown]
  - Injection site erythema [Not Recovered/Not Resolved]
